FAERS Safety Report 9509574 (Version 1)
Quarter: 2013Q3

REPORT INFORMATION
  Report Type: Spontaneous
  Country: US (occurrence: US)
  Receive Date: 20130909
  Receipt Date: 20130909
  Transmission Date: 20140515
  Serious: No
  Sender: FDA-Public Use
  Company Number: US-BRISTOL-MYERS SQUIBB COMPANY-17217274

PATIENT
  Age: 39 Year
  Sex: Female

DRUGS (5)
  1. ABILIFY TABS 5 MG [Suspect]
     Dosage: TABLET SPLITTED IN TO 2.5MG
  2. PRISTIQ [Concomitant]
  3. ADDERALL [Concomitant]
  4. AMBIEN [Concomitant]
  5. LISINOPRIL [Concomitant]

REACTIONS (1)
  - Weight increased [Unknown]
